FAERS Safety Report 10250419 (Version 1)
Quarter: 2014Q2

REPORT INFORMATION
  Report Type: Spontaneous
  Country: DE (occurrence: DE)
  Receive Date: 20140620
  Receipt Date: 20140620
  Transmission Date: 20141212
  Serious: Yes (Other)
  Sender: FDA-Public Use
  Company Number: DE-ACTAVIS-2014-13119

PATIENT
  Age: 41 Year
  Sex: Male
  Weight: 94 kg

DRUGS (3)
  1. SIMVASTATIN (UNKNOWN) [Suspect]
     Indication: HYPERCHOLESTEROLAEMIA
     Dosage: 20 MG, UNK
     Route: 048
     Dates: start: 20131224, end: 20140108
  2. SIMVASTATIN (UNKNOWN) [Suspect]
     Dosage: 20MG - 10MG
     Route: 048
     Dates: start: 20140110, end: 20140222
  3. PRAVASTATIN (UNKNOWN) [Suspect]
     Indication: HYPERCHOLESTEROLAEMIA
     Dosage: 20 MG, UNK
     Route: 048
     Dates: start: 20140306, end: 20140315

REACTIONS (3)
  - Acute myocardial infarction [Recovered/Resolved]
  - Paraesthesia [Recovered/Resolved]
  - Myalgia [Recovered/Resolved]
